FAERS Safety Report 9348450 (Version 1)
Quarter: 2013Q2

REPORT INFORMATION
  Report Type: Spontaneous
  Country: JP (occurrence: JP)
  Receive Date: 20130614
  Receipt Date: 20130614
  Transmission Date: 20140414
  Serious: Yes (Other)
  Sender: FDA-Public Use
  Company Number: JP-ASTELLAS-2013JP006646

PATIENT
  Age: 70 Year
  Sex: Male

DRUGS (4)
  1. PROGRAF [Suspect]
     Indication: IMMUNOSUPPRESSANT DRUG THERAPY
     Dosage: 5 MG, UNKNOWN/D
     Route: 065
  2. PROGRAF [Suspect]
     Dosage: 2.5 MG, UNKNOWN/D
     Route: 065
  3. CELLCEPT                           /01275102/ [Concomitant]
     Indication: IMMUNOSUPPRESSANT DRUG THERAPY
     Dosage: 750 MG, UNKNOWN/D
     Route: 048
  4. PREDNISOLONE [Concomitant]
     Indication: IMMUNOSUPPRESSANT DRUG THERAPY
     Dosage: 5 MG, UNKNOWN/D
     Route: 065

REACTIONS (4)
  - Gastric cancer [Unknown]
  - Metastases to liver [Unknown]
  - Bone marrow failure [Unknown]
  - Blood creatinine increased [Unknown]
